FAERS Safety Report 6718237-5 (Version None)
Quarter: 2010Q2

REPORT INFORMATION
  Report Type: 
  Country: None (occurrence: None)
  Receive Date: 20100510
  Receipt Date: 20100427
  Transmission Date: 20101027
  Serious: Yes (Hospitalization, Other)
  Sender: FDA-Public Use
  Company Number: PHHY2010JP20830

PATIENT
  Sex: Female

DRUGS (8)
  1. RASILEZ [Suspect]
     Indication: HYPERTENSION
     Dosage: 150 MG
     Route: 048
     Dates: start: 20100326, end: 20100330
  2. TAKEPRON [Concomitant]
     Indication: GASTRIC ULCER
     Dosage: 15 MG, UNK
     Route: 048
     Dates: start: 20100326, end: 20100420
  3. AMLODIN [Concomitant]
     Indication: HYPERTENSION
     Dosage: 5 MG
     Route: 048
     Dates: start: 20100329, end: 20100420
  4. OLMESARTAN MEDOXOMIL [Concomitant]
     Indication: HYPERTENSION
     Dosage: 20 MG
     Route: 048
     Dates: start: 20100331
  5. HERBESSER [Concomitant]
     Indication: HYPERTENSION
     Dosage: 250 MG
     Dates: start: 20100326, end: 20100327
  6. SOLITA [Concomitant]
     Indication: FLUID REPLACEMENT
     Dosage: 1500 ML
     Dates: start: 20100327, end: 20100330
  7. GLYCERIN [Concomitant]
     Indication: BRAIN OEDEMA
     Dosage: 600 ML
     Dates: start: 20100328, end: 20100406
  8. POTACOL-R [Concomitant]
     Indication: FLUID REPLACEMENT
     Dosage: 1000 ML
     Dates: start: 20100331, end: 20100405

REACTIONS (9)
  - ALTERED STATE OF CONSCIOUSNESS [None]
  - ASPARTATE AMINOTRANSFERASE INCREASED [None]
  - BRAIN OEDEMA [None]
  - DECREASED APPETITE [None]
  - GAMMA-GLUTAMYLTRANSFERASE INCREASED [None]
  - HYPONATRAEMIA [None]
  - MONOCYTE COUNT INCREASED [None]
  - SOMNOLENCE [None]
  - VOMITING [None]
